FAERS Safety Report 8033162-8 (Version None)
Quarter: 2012Q1

REPORT INFORMATION
  Report Type: 
  Country: None (occurrence: None)
  Receive Date: 20120110
  Receipt Date: 20120110
  Transmission Date: 20120608
  Serious: Yes (Other)
  Sender: FDA-Public Use
  Company Number: None

PATIENT
  Age: 80 Year
  Sex: Male
  Weight: 64.863 kg

DRUGS (1)
  1. LOSARTAN POTASSIUM [Suspect]
     Indication: HYPERTENSION
     Dosage: 1 TABLET BEFORE BED
     Route: 048
     Dates: start: 20111207, end: 20111220

REACTIONS (3)
  - HYPERTENSION [None]
  - PRODUCT SUBSTITUTION ISSUE [None]
  - HEADACHE [None]
